FAERS Safety Report 16691431 (Version 2)
Quarter: 2019Q3

REPORT INFORMATION
  Report Type: Report from Study
  Country: US (occurrence: US)
  Receive Date: 20190812
  Receipt Date: 20190816
  Transmission Date: 20191004
  Serious: No
  Sender: FDA-Public Use
  Company Number: PHEH2019US032803

PATIENT
  Sex: Female

DRUGS (1)
  1. ENTRESTO [Suspect]
     Active Substance: SACUBITRIL\VALSARTAN
     Indication: PRODUCT USED FOR UNKNOWN INDICATION
     Dosage: UNK
     Route: 048
     Dates: start: 201902

REACTIONS (6)
  - Weight increased [Unknown]
  - Blood glucose increased [Unknown]
  - Weight loss poor [Unknown]
  - Cough [Unknown]
  - Joint swelling [Unknown]
  - Respiratory tract congestion [Unknown]
